FAERS Safety Report 20340515 (Version 1)
Quarter: 2022Q1

REPORT INFORMATION
  Report Type: Spontaneous
  Country: IT (occurrence: IT)
  Receive Date: 20220117
  Receipt Date: 20220117
  Transmission Date: 20220423
  Serious: No
  Sender: FDA-Public Use
  Company Number: None

PATIENT
  Age: 38 Year
  Sex: Female

DRUGS (3)
  1. SOTROVIMAB [Suspect]
     Active Substance: SOTROVIMAB
     Indication: COVID-19
     Dosage: 500 MG
     Route: 042
     Dates: start: 20220104, end: 20220104
  2. SYMBICORT INHALATION [Concomitant]
     Indication: Asthma
     Dosage: UNK
     Route: 055
  3. AZITHROMYCIN [Concomitant]
     Active Substance: AZITHROMYCIN
     Indication: Bronchitis
     Dosage: UNK
     Route: 048
     Dates: start: 20220104, end: 20220109

REACTIONS (3)
  - Musculoskeletal chest pain [Not Recovered/Not Resolved]
  - Abdominal pain [Not Recovered/Not Resolved]
  - Nausea [Not Recovered/Not Resolved]

NARRATIVE: CASE EVENT DATE: 20220105
